FAERS Safety Report 7329470-6 (Version None)
Quarter: 2011Q1

REPORT INFORMATION
  Report Type: 
  Country: None (occurrence: None)
  Receive Date: 20110303
  Receipt Date: 20110224
  Transmission Date: 20110831
  Serious: Yes (Hospitalization, Other)
  Sender: FDA-Public Use
  Company Number: JP-BAYER-200912012BYL

PATIENT
  Age: 73 Year
  Sex: Male
  Weight: 59 kg

DRUGS (8)
  1. ADALAT CC [Concomitant]
     Dosage: 40 MG (DAILY DOSE), , ORAL
     Route: 048
     Dates: start: 20090513
  2. MICARDIS [Concomitant]
     Dosage: 20 MG (DAILY DOSE), , ORAL
     Route: 048
     Dates: start: 20090513
  3. RIZE [Concomitant]
     Dosage: 5 MG (DAILY DOSE), , ORAL
     Route: 048
     Dates: start: 20090513
  4. NEXAVAR [Suspect]
     Indication: RENAL CELL CARCINOMA
     Route: 048
     Dates: start: 20090514, end: 20090530
  5. HYPEN [Concomitant]
     Dosage: 400 MG (DAILY DOSE), , ORAL
     Route: 048
     Dates: start: 20090527
  6. NEXAVAR [Suspect]
     Route: 048
     Dates: end: 20090613
  7. SILODOSIN [Concomitant]
     Dosage: 8 MG (DAILY DOSE), , ORAL
     Route: 048
     Dates: start: 20090520
  8. NEXAVAR [Suspect]
     Dosage: 800 MG (DAILY DOSE), , ORAL
     Route: 048
     Dates: start: 20090703, end: 20090706

REACTIONS (6)
  - PYELONEPHRITIS [None]
  - RENAL CELL CARCINOMA [None]
  - PNEUMONIA [None]
  - PSEUDOMEMBRANOUS COLITIS [None]
  - PYREXIA [None]
  - URINARY TRACT INFECTION [None]
